FAERS Safety Report 11743485 (Version 2)
Quarter: 2015Q4

REPORT INFORMATION
  Report Type: Spontaneous
  Country: FR (occurrence: FR)
  Receive Date: 20151116
  Receipt Date: 20151118
  Transmission Date: 20160304
  Serious: Yes (Hospitalization)
  Sender: FDA-Public Use
  Company Number: FR-SA-2015SA175820

PATIENT
  Age: 76 Year
  Sex: Female

DRUGS (10)
  1. LOVENOX [Suspect]
     Active Substance: ENOXAPARIN SODIUM
     Dosage: LOVENOX 8000/0.8ML
     Route: 065
     Dates: start: 20150622, end: 20150702
  2. EVISTA [Suspect]
     Active Substance: RALOXIFENE HYDROCHLORIDE
     Dosage: EVISTA 1/DAY.
     Route: 065
  3. FUROSEMIDE. [Suspect]
     Active Substance: FUROSEMIDE
     Dosage: FUROSEMIDE 60 MG/DAY
     Route: 065
     Dates: start: 20150622, end: 20150702
  4. MOLSIDOMINE [Suspect]
     Active Substance: MOLSIDOMINE
     Dosage: MOLSIDOMINE 4 3/DAY,
     Route: 065
     Dates: start: 20150622, end: 20150702
  5. POTASSIUM CHLORIDE. [Suspect]
     Active Substance: POTASSIUM CHLORIDE
     Dosage: POTASSIUM CHLORIDE 1/DAY,
     Route: 065
     Dates: start: 20150622, end: 20150702
  6. BISOPROLOL [Suspect]
     Active Substance: BISOPROLOL
     Dosage: BISOPROLOL 2.5 2/DAY
     Route: 065
     Dates: start: 20150622, end: 20150702
  7. XARELTO [Suspect]
     Active Substance: RIVAROXABAN
     Route: 065
     Dates: start: 20150622, end: 20150702
  8. AMLODIPINE [Suspect]
     Active Substance: AMLODIPINE BESYLATE
     Dosage: AMLODIPINE 5 1/DAY
     Route: 065
     Dates: start: 20150622, end: 20150702
  9. CANDESARTAN [Suspect]
     Active Substance: CANDESARTAN
     Dosage: CANDESARTAN 8 1/DAY,
     Route: 065
     Dates: start: 20150622, end: 20150702
  10. LEVOTHYROXINE. [Suspect]
     Active Substance: LEVOTHYROXINE
     Dosage: LEVOTHYROXINE 50 1/DAY
     Route: 065
     Dates: start: 20150622, end: 20150702

REACTIONS (2)
  - Anaemia [Recovering/Resolving]
  - Paralysis [Recovering/Resolving]

NARRATIVE: CASE EVENT DATE: 20150703
